FAERS Safety Report 9050308 (Version 1)
Quarter: 2013Q1

REPORT INFORMATION
  Report Type: Spontaneous
  Country: US (occurrence: US)
  Receive Date: 20130205
  Receipt Date: 20130205
  Transmission Date: 20140127
  Serious: Yes (Hospitalization)
  Sender: FDA-Public Use
  Company Number: PHEH2013US002935

PATIENT
  Age: 52 None
  Sex: Female

DRUGS (2)
  1. NEORAL [Suspect]
     Dosage: 75 MG, QD
     Route: 048
  2. MYFORTIC [Suspect]

REACTIONS (1)
  - Blood pressure abnormal [Unknown]
